FAERS Safety Report 4448295-2 (Version None)
Quarter: 2004Q3

REPORT INFORMATION
  Report Type: 
  Country: None (occurrence: None)
  Receive Date: 20040910
  Receipt Date: 20040826
  Transmission Date: 20050211
  Serious: Yes (Hospitalization)
  Sender: FDA-Public Use
  Company Number: CHPA2004US03307

PATIENT
  Age: 50 Year
  Sex: Female
  Weight: 86.2 kg

DRUGS (3)
  1. TRIAMINIC COUGH AND SORE THROAT GRAPE FLAVOR (NCH) (ACETAMINOPHEN (PAR [Suspect]
     Indication: NASOPHARYNGITIS
     Dosage: 2 TSP, BID, ORAL
     Route: 048
     Dates: start: 20040819, end: 20040819
  2. TENORMIN [Concomitant]
  3. ATARAX [Concomitant]

REACTIONS (4)
  - MEDICATION ERROR [None]
  - PNEUMONIA [None]
  - RASH MORBILLIFORM [None]
  - RASH PRURITIC [None]
